FAERS Safety Report 7181084-7 (Version None)
Quarter: 2010Q4

REPORT INFORMATION
  Report Type: 
  Country: None (occurrence: None)
  Receive Date: 20101221
  Receipt Date: 20100416
  Transmission Date: 20110411
  Serious: No
  Sender: FDA-Public Use
  Company Number: US-AMGEN-KDL406951

PATIENT

DRUGS (4)
  1. ENBREL [Suspect]
     Indication: RHEUMATOID ARTHRITIS
     Dosage: 50 MG, QWK
     Route: 058
  2. SULFASALAZINE [Concomitant]
     Dosage: 500 MG, QID
  3. SULFASALAZINE [Concomitant]
     Dosage: 500 MG, QID
  4. METHOTREXATE [Concomitant]
     Dosage: UNK UNK, QWK

REACTIONS (5)
  - HYPOAESTHESIA [None]
  - MUSCLE SPASMS [None]
  - MUSCLE STRAIN [None]
  - PARAESTHESIA [None]
  - RHEUMATOID ARTHRITIS [None]
